FAERS Safety Report 21026033 (Version 2)
Quarter: 2022Q3

REPORT INFORMATION
  Report Type: Spontaneous
  Country: US (occurrence: US)
  Receive Date: 20220630
  Receipt Date: 20220728
  Transmission Date: 20221027
  Serious: No
  Sender: FDA-Public Use
  Company Number: US-ELI_LILLY_AND_COMPANY-US202206014022

PATIENT
  Age: 67 Year
  Sex: Female

DRUGS (12)
  1. HUMULIN N [Suspect]
     Active Substance: INSULIN HUMAN
     Indication: Type 2 diabetes mellitus
     Dosage: UNK UNK, UNKNOWN
     Route: 065
  2. HUMULIN N [Suspect]
     Active Substance: INSULIN HUMAN
     Indication: Type 2 diabetes mellitus
     Dosage: UNK UNK, UNKNOWN
     Route: 065
  3. HUMULIN N [Suspect]
     Active Substance: INSULIN HUMAN
     Indication: Type 2 diabetes mellitus
     Dosage: UNK UNK, UNKNOWN
     Route: 065
  4. HUMULIN N [Suspect]
     Active Substance: INSULIN HUMAN
     Dosage: 42 U, EACH MORNING
     Route: 065
  5. HUMULIN N [Suspect]
     Active Substance: INSULIN HUMAN
     Dosage: 42 U, EACH MORNING
     Route: 065
  6. HUMULIN N [Suspect]
     Active Substance: INSULIN HUMAN
     Dosage: 34 U, EACH EVENING
     Route: 065
  7. HUMULIN N [Suspect]
     Active Substance: INSULIN HUMAN
     Dosage: 34 U, EACH EVENING
     Route: 065
  8. HUMULIN N [Suspect]
     Active Substance: INSULIN HUMAN
     Dosage: 42 U, EACH MORNING
     Route: 065
  9. HUMULIN N [Suspect]
     Active Substance: INSULIN HUMAN
     Dosage: 42 U, EACH MORNING
     Route: 065
  10. HUMULIN N [Suspect]
     Active Substance: INSULIN HUMAN
     Dosage: 34 U, EACH EVENING
     Route: 065
  11. HUMULIN N [Suspect]
     Active Substance: INSULIN HUMAN
     Dosage: 34 U, EACH EVENING
     Route: 065
  12. METFORMIN [Concomitant]
     Active Substance: METFORMIN HYDROCHLORIDE
     Indication: Type 2 diabetes mellitus

REACTIONS (3)
  - Blood glucose increased [Recovering/Resolving]
  - Memory impairment [Unknown]
  - Visual impairment [Unknown]

NARRATIVE: CASE EVENT DATE: 20220626
